FAERS Safety Report 14492539 (Version 1)
Quarter: 2018Q1

REPORT INFORMATION
  Report Type: Spontaneous
  Country: US (occurrence: US)
  Receive Date: 20180205
  Receipt Date: 20180205
  Transmission Date: 20180509
  Serious: Yes (Other)
  Sender: FDA-Public Use
  Company Number: None

PATIENT
  Age: 41 Year
  Sex: Female

DRUGS (2)
  1. FENTANYL. [Suspect]
     Active Substance: FENTANYL
  2. MORPHINE [Suspect]
     Active Substance: MORPHINE

REACTIONS (3)
  - Confusional state [None]
  - Abdominal pain [None]
  - Disorientation [None]
